FAERS Safety Report 19186000 (Version 1)
Quarter: 2021Q2

REPORT INFORMATION
  Report Type: Spontaneous
  Country: US (occurrence: US)
  Receive Date: 20210427
  Receipt Date: 20210427
  Transmission Date: 20210717
  Serious: No
  Sender: FDA-Public Use
  Company Number: US-BAYER-2021-131599

PATIENT
  Sex: Female

DRUGS (9)
  1. PRESERVISION AREDS 2 [Concomitant]
     Active Substance: MINERALS\VITAMINS
  2. LOSARTAN. [Concomitant]
     Active Substance: LOSARTAN
  3. METFORMIN HCL [Concomitant]
     Active Substance: METFORMIN HYDROCHLORIDE
  4. ATORVASTATIN [Concomitant]
     Active Substance: ATORVASTATIN
  5. PROTONIX [OMEPRAZOLE] [Concomitant]
     Active Substance: OMEPRAZOLE
  6. RASAGILINE. [Concomitant]
     Active Substance: RASAGILINE
  7. LUCENTIS [Concomitant]
     Active Substance: RANIBIZUMAB
  8. ALEVE [Suspect]
     Active Substance: NAPROXEN SODIUM
     Indication: PRODUCT USED FOR UNKNOWN INDICATION
  9. COVID?19 VACCINE NOS. [Concomitant]
     Active Substance: COVID-19 VACCINE NOS

REACTIONS (1)
  - Abdominal discomfort [Unknown]
